FAERS Safety Report 7567922-4 (Version None)
Quarter: 2011Q2

REPORT INFORMATION
  Report Type: 
  Country: None (occurrence: None)
  Receive Date: 20110623
  Receipt Date: 20110621
  Transmission Date: 20111010
  Serious: Yes (Disabling, Other)
  Sender: FDA-Public Use
  Company Number: MX-ABBOTT-11P-107-0725420-00

PATIENT
  Sex: Male

DRUGS (4)
  1. ENTEROGERMINA [Concomitant]
     Indication: DISBACTERIOSIS
     Dosage: 1 VIAL DAILY
     Route: 048
     Dates: start: 20110410, end: 20110430
  2. TRUVADA [Concomitant]
     Indication: HIV INFECTION
     Dosage: ONE DAILY
     Route: 048
     Dates: start: 20081004
  3. KALETRA [Suspect]
     Indication: HIV INFECTION
     Route: 048
     Dates: start: 20080512
  4. CALCIUM CARBONATE [Concomitant]
     Indication: DIARRHOEA
     Dosage: 1 G WITH MEALS
     Route: 048
     Dates: start: 20090506

REACTIONS (6)
  - FAECAL INCONTINENCE [None]
  - DYSLIPIDAEMIA [None]
  - KAPOSI'S SARCOMA [None]
  - WEIGHT DECREASED [None]
  - DRUG RESISTANCE [None]
  - DIARRHOEA [None]
